FAERS Safety Report 6435914-4 (Version None)
Quarter: 2009Q4

REPORT INFORMATION
  Report Type: 
  Country: None (occurrence: None)
  Receive Date: 20091111
  Receipt Date: 20091103
  Transmission Date: 20100525
  Serious: Yes (Hospitalization)
  Sender: FDA-Public Use
  Company Number: DE-TEVA-187764ISR

PATIENT
  Age: 69 Year
  Sex: Male
  Weight: 85 kg

DRUGS (4)
  1. BISOPROLOL [Interacting]
     Indication: HYPERTENSION
     Route: 048
     Dates: end: 20090212
  2. RAMIPRIL [Suspect]
     Route: 048
     Dates: end: 20090218
  3. TAMSULOSIN [Interacting]
     Indication: BENIGN PROSTATIC HYPERPLASIA
     Route: 048
  4. SILDENAFIL [Suspect]
     Indication: ERECTILE DYSFUNCTION
     Route: 048
     Dates: start: 20090207, end: 20090207

REACTIONS (2)
  - DRUG INTERACTION [None]
  - PRESYNCOPE [None]
